FAERS Safety Report 5659626-X (Version None)
Quarter: 2008Q1

REPORT INFORMATION
  Report Type: 
  Country: None (occurrence: None)
  Receive Date: 20080311
  Receipt Date: 20080311
  Transmission Date: 20080703
  Serious: Yes (Death)
  Sender: FDA-Public Use
  Company Number: None

PATIENT
  Age: 65 Year
  Sex: Male
  Weight: 113.3993 kg

DRUGS (1)
  1. HEPARIN [Suspect]
     Indication: CORONARY ARTERY BYPASS
     Dosage: SEE ATT BILL

REACTIONS (1)
  - HEPARIN-INDUCED THROMBOCYTOPENIA [None]
